FAERS Safety Report 12784306 (Version 1)
Quarter: 2016Q3

REPORT INFORMATION
  Report Type: Report from Study
  Country: FR (occurrence: FR)
  Receive Date: 20160927
  Receipt Date: 20160927
  Transmission Date: 20161109
  Serious: Yes (Other)
  Sender: FDA-Public Use
  Company Number: FR-BEH-200509385

PATIENT
  Age: 55 Year
  Sex: Male
  Weight: 72 kg

DRUGS (3)
  1. MONONINE [Suspect]
     Active Substance: COAGULATION FACTOR IX HUMAN
     Indication: OSTEOSYNTHESIS
     Route: 042
     Dates: start: 20040406, end: 20040418
  2. MONONINE [Suspect]
     Active Substance: COAGULATION FACTOR IX HUMAN
     Indication: FACTOR IX DEFICIENCY
     Route: 042
     Dates: start: 20040811, end: 20040819
  3. MONONINE [Suspect]
     Active Substance: COAGULATION FACTOR IX HUMAN
     Indication: NEPHRECTOMY

REACTIONS (2)
  - Lymphangitis [Unknown]
  - Injection site thrombosis [Unknown]

NARRATIVE: CASE EVENT DATE: 20040408
